FAERS Safety Report 6204631-8 (Version None)
Quarter: 2009Q2

REPORT INFORMATION
  Report Type: 
  Country: None (occurrence: None)
  Receive Date: 20090522
  Receipt Date: 20090514
  Transmission Date: 20091009
  Serious: Yes (Hospitalization)
  Sender: FDA-Public Use
  Company Number: WAES 0905FRA00031

PATIENT
  Age: 53 Year
  Sex: Male

DRUGS (6)
  1. CAP VORINOSTAT [Suspect]
     Indication: NON-SMALL CELL LUNG CANCER
     Dosage: 400 MG/DAILY, PO
     Route: 048
     Dates: start: 20090504, end: 20090510
  2. GEMCITABINE [Suspect]
     Indication: NON-SMALL CELL LUNG CANCER
     Dosage: 12550 MG MG/M[2]/DAIL, IV
     Route: 042
     Dates: start: 20090506, end: 20090506
  3. CISPLATIN [Suspect]
     Indication: NON-SMALL CELL LUNG CANCER
     Dosage: 75 MG/M[2]/DAILY, IV
     Route: 042
     Dates: start: 20090506, end: 20090506
  4. ETHYL LOFLAZEPATE [Concomitant]
  5. FONDAPARINUX SODIUM [Concomitant]
  6. OMEPRAZOLE [Concomitant]

REACTIONS (1)
  - PYREXIA [None]
